FAERS Safety Report 20288905 (Version 1)
Quarter: 2022Q1

REPORT INFORMATION
  Report Type: Report from Study
  Country: ES (occurrence: ES)
  Receive Date: 20220104
  Receipt Date: 20220104
  Transmission Date: 20220423
  Serious: Yes (Life-Threatening, Other)
  Sender: FDA-Public Use
  Company Number: ES-BEH-2021139928

PATIENT
  Age: 54 Year
  Sex: Female
  Weight: 83 kg

DRUGS (1)
  1. RIASTAP [Suspect]
     Active Substance: FIBRINOGEN HUMAN
     Indication: Hypofibrinogenaemia
     Dosage: 4 MILLIGRAM
     Route: 042
     Dates: start: 20210303, end: 20210303

REACTIONS (7)
  - Pulseless electrical activity [Fatal]
  - Dyspnoea [Unknown]
  - Tachycardia [Unknown]
  - Hypotension [Unknown]
  - Depressed level of consciousness [Unknown]
  - No adverse event [Unknown]
  - Off label use [Unknown]

NARRATIVE: CASE EVENT DATE: 20210308
